FAERS Safety Report 18005698 (Version 7)
Quarter: 2022Q4

REPORT INFORMATION
  Report Type: Report from Study
  Country: FR (occurrence: FR)
  Receive Date: 20200710
  Receipt Date: 20221215
  Transmission Date: 20230112
  Serious: Yes (Other)
  Sender: FDA-Public Use
  Company Number: NVSC2020FR190400

PATIENT
  Age: 13 Year
  Sex: Male
  Weight: 33.4 kg

DRUGS (27)
  1. TISAGENLECLEUCEL [Suspect]
     Active Substance: TISAGENLECLEUCEL
     Indication: B-cell lymphoma
     Dosage: 1.4 X10E6 CELLS/KG
     Route: 042
     Dates: start: 20200211
  2. TOCILIZUMAB [Suspect]
     Active Substance: TOCILIZUMAB
     Indication: B-cell lymphoma
     Dosage: 280 MG/KG
     Route: 042
     Dates: start: 20200219
  3. VORICONAZOLE [Concomitant]
     Active Substance: VORICONAZOLE
     Indication: Aspergillus infection
     Dosage: UNK
     Route: 065
     Dates: start: 20200316, end: 20200317
  4. VORICONAZOLE [Concomitant]
     Active Substance: VORICONAZOLE
     Dosage: UNK
     Route: 065
     Dates: start: 20200318, end: 20200320
  5. PROSTIGMINE [Concomitant]
     Indication: Urinary retention
     Dosage: UNK
     Route: 065
     Dates: start: 20200313, end: 20200318
  6. VANCOMYCIN [Concomitant]
     Active Substance: VANCOMYCIN
     Indication: Aspergillus infection
     Dosage: UNK
     Route: 065
     Dates: start: 20200315, end: 20200320
  7. VANCOMYCIN [Concomitant]
     Active Substance: VANCOMYCIN
     Dosage: UNK
     Route: 065
     Dates: start: 20200320, end: 20200330
  8. PIPERACILLIN SODIUM\TAZOBACTAM SODIUM [Concomitant]
     Active Substance: PIPERACILLIN SODIUM\TAZOBACTAM SODIUM
     Indication: Aspergillus infection
     Dosage: UNK
     Route: 065
     Dates: start: 20200322, end: 20200330
  9. NUBAIN [Concomitant]
     Active Substance: NALBUPHINE HYDROCHLORIDE
     Indication: Neuralgia
     Dosage: UNK
     Route: 065
     Dates: start: 20200324, end: 20200326
  10. NUBAIN [Concomitant]
     Active Substance: NALBUPHINE HYDROCHLORIDE
     Indication: Dysaesthesia
  11. LYRICA [Concomitant]
     Active Substance: PREGABALIN
     Indication: Dysaesthesia
     Dosage: UNK
     Route: 065
     Dates: start: 20200309, end: 20200330
  12. NEURONTIN [Concomitant]
     Active Substance: GABAPENTIN
     Indication: Dysaesthesia
     Dosage: UNK
     Route: 065
     Dates: start: 20200309, end: 20200330
  13. BACTRIM [Concomitant]
     Active Substance: SULFAMETHOXAZOLE\TRIMETHOPRIM
     Indication: Infection prophylaxis
     Dosage: UNK
     Route: 065
     Dates: start: 20200220, end: 20200308
  14. KEPPRA [Concomitant]
     Active Substance: LEVETIRACETAM
     Indication: Prophylaxis
     Dosage: UNK
     Route: 065
     Dates: start: 20200219, end: 20200406
  15. PANTOPRAZOLE [Concomitant]
     Active Substance: PANTOPRAZOLE
     Indication: Vomiting
     Dosage: UNK
     Route: 065
     Dates: start: 20200302, end: 20200313
  16. POLARAMINE [Concomitant]
     Active Substance: DEXCHLORPHENIRAMINE MALEATE
     Indication: Prophylaxis
     Dosage: UNK
     Route: 065
     Dates: start: 20200119, end: 20200330
  17. MORPHINE [Concomitant]
     Active Substance: MORPHINE
     Indication: Neuralgia
     Dosage: UNK
     Route: 065
     Dates: start: 20200227, end: 20200406
  18. GRANULOCYTE COLONY-STIMULATING FACTOR NOS [Concomitant]
     Active Substance: GRANULOCYTE COLONY-STIMULATING FACTOR NOS
     Indication: White blood cell count decreased
     Dosage: UNK
     Route: 065
     Dates: start: 20200217, end: 20200328
  19. GRANULOCYTE COLONY-STIMULATING FACTOR NOS [Concomitant]
     Active Substance: GRANULOCYTE COLONY-STIMULATING FACTOR NOS
     Indication: Neutrophil count decreased
  20. RIVOTRIL [Concomitant]
     Active Substance: CLONAZEPAM
     Indication: Bone pain
     Dosage: UNK
     Route: 065
     Dates: start: 20200203, end: 20200330
  21. RIVOTRIL [Concomitant]
     Active Substance: CLONAZEPAM
     Indication: Neuralgia
  22. ACUPAN [Concomitant]
     Active Substance: NEFOPAM HYDROCHLORIDE
     Indication: Bone pain
     Dosage: UNK
     Route: 065
     Dates: start: 20200211, end: 20200406
  23. ACUPAN [Concomitant]
     Active Substance: NEFOPAM HYDROCHLORIDE
     Indication: Abdominal pain
  24. MEROPENEM [Concomitant]
     Active Substance: MEROPENEM
     Indication: Candida infection
     Dosage: UNK
     Route: 065
     Dates: start: 20200213, end: 20200306
  25. FLUCONAZOLE [Concomitant]
     Active Substance: FLUCONAZOLE
     Indication: Aspergillus infection
     Dosage: UNK
     Route: 065
     Dates: start: 20200314, end: 20200316
  26. TOCILIZUMAB [Concomitant]
     Active Substance: TOCILIZUMAB
     Indication: Cytokine release syndrome
     Dosage: UNK
     Route: 065
  27. HYDROCORTISONE [Concomitant]
     Active Substance: HYDROCORTISONE
     Indication: Bone pain
     Dosage: UNK
     Route: 065
     Dates: start: 20200211, end: 20200311

REACTIONS (1)
  - Peripheral sensorimotor neuropathy [Not Recovered/Not Resolved]

NARRATIVE: CASE EVENT DATE: 20200327
